FAERS Safety Report 22101872 (Version 2)
Quarter: 2023Q1

REPORT INFORMATION
  Report Type: Other
  Country: MX (occurrence: MX)
  Receive Date: 20230316
  Receipt Date: 20230329
  Transmission Date: 20230418
  Serious: Yes (Life-Threatening, Other)
  Sender: FDA-Public Use
  Company Number: MX-BoehringerIngelheim-2023-BI-224175

PATIENT
  Age: 27 Year
  Sex: Female

DRUGS (1)
  1. METALYSE [Suspect]
     Active Substance: TENECTEPLASE
     Indication: Acute myocardial infarction
     Route: 065

REACTIONS (3)
  - Coronary artery dissection [Unknown]
  - Aortic dissection [Unknown]
  - Drug ineffective [Unknown]
